FAERS Safety Report 17182779 (Version 1)
Quarter: 2019Q4

REPORT INFORMATION
  Report Type: Spontaneous
  Country: GB (occurrence: GB)
  Receive Date: 20191220
  Receipt Date: 20191220
  Transmission Date: 20200122
  Serious: Yes (Hospitalization, Disabling, Other)
  Sender: FDA-Public Use
  Company Number: GB-SUN PHARMACEUTICAL INDUSTRIES LTD-2019RR-231395

PATIENT
  Age: 26 Year
  Sex: Female
  Weight: 83.46 kg

DRUGS (2)
  1. SERTRALINE [Suspect]
     Active Substance: SERTRALINE HYDROCHLORIDE
     Indication: ANXIETY
     Dosage: 50 MILLIGRAM, UNK
     Route: 048
     Dates: start: 20190915, end: 20190921
  2. VITAMIN B12 [Concomitant]
     Active Substance: CYANOCOBALAMIN
     Indication: PRODUCT USED FOR UNKNOWN INDICATION
     Dosage: 1 DOSAGE FORM, 3DOSE/MONTH
     Route: 065

REACTIONS (17)
  - Hypertension [Unknown]
  - Withdrawal syndrome [Unknown]
  - Body temperature increased [Not Recovered/Not Resolved]
  - Muscle spasms [Not Recovered/Not Resolved]
  - Palpitations [Unknown]
  - Vision blurred [Unknown]
  - Heart rate increased [Not Recovered/Not Resolved]
  - Tachycardia [Not Recovered/Not Resolved]
  - Bruxism [Unknown]
  - Presyncope [Unknown]
  - Muscle spasms [Unknown]
  - Hallucination [Not Recovered/Not Resolved]
  - Euphoric mood [Unknown]
  - Vertigo [Not Recovered/Not Resolved]
  - Restlessness [Unknown]
  - Sudden hearing loss [Unknown]
  - Disturbance in attention [Unknown]

NARRATIVE: CASE EVENT DATE: 20190915
